FAERS Safety Report 9325098 (Version 1)
Quarter: 2013Q2

REPORT INFORMATION
  Report Type: Spontaneous
  Country: US (occurrence: None)
  Receive Date: 20130529
  Receipt Date: 20130529
  Transmission Date: 20140414
  Serious: Yes (Death, Hospitalization)
  Sender: FDA-Public Use
  Company Number: FK201301740

PATIENT
  Sex: Female

DRUGS (3)
  1. EPIRUBICIN HYDROCHLORIDE [Suspect]
     Indication: BREAST CANCER
  2. CYCLOPHOSPHAMIDE [Suspect]
     Indication: BREAST CANCER
  3. TAXOTERE (DOCETAXEL) [Suspect]

REACTIONS (11)
  - Hepatitis B [None]
  - Hepatitis fulminant [None]
  - Dehydration [None]
  - Retroperitoneal haemorrhage [None]
  - Hepatic failure [None]
  - General physical health deterioration [None]
  - Coagulopathy [None]
  - Coma hepatic [None]
  - Hepatorenal syndrome [None]
  - Cholangiocarcinoma [None]
  - Infection in an immunocompromised host [None]
